FAERS Safety Report 16094386 (Version 1)
Quarter: 2019Q1

REPORT INFORMATION
  Report Type: Spontaneous
  Country: US (occurrence: US)
  Receive Date: 20190215
  Receipt Date: 20190215
  Transmission Date: 20190418
  Serious: No
  Sender: FDA-Public Use
  Company Number: None

PATIENT
  Age: 65 Year
  Sex: Female

DRUGS (1)
  1. REBIF REBIDOSE [Suspect]
     Active Substance: INTERFERON BETA-1A
     Route: 058
     Dates: start: 2018

REACTIONS (5)
  - Incontinence [None]
  - Flatulence [None]
  - Insomnia [None]
  - Ocular icterus [None]
  - Alopecia [None]

NARRATIVE: CASE EVENT DATE: 20190215
